FAERS Safety Report 4567659-X (Version None)
Quarter: 2005Q1

REPORT INFORMATION
  Report Type: 
  Country: None (occurrence: None)
  Receive Date: 20050114
  Receipt Date: 20050114
  Transmission Date: 20050727
  Serious: No
  Sender: FDA-Public Use
  Company Number: None

PATIENT
  Age: 54 Year
  Sex: Female
  Weight: 68.0396 kg

DRUGS (2)
  1. PERCOCET [Suspect]
     Indication: BACK PAIN
     Dosage: 5/325 1 PO 3-4 HR -PRN
     Route: 048
  2. PERCOCET [Suspect]
     Indication: RADICULAR PAIN
     Dosage: 5/325 1 PO 3-4 HR -PRN
     Route: 048

REACTIONS (2)
  - INADEQUATE ANALGESIA [None]
  - PHARMACEUTICAL PRODUCT COMPLAINT [None]
